FAERS Safety Report 15626660 (Version 1)
Quarter: 2018Q4

REPORT INFORMATION
  Report Type: Report from Study
  Country: US (occurrence: US)
  Receive Date: 20181116
  Receipt Date: 20181116
  Transmission Date: 20190205
  Serious: Yes (Other)
  Sender: FDA-Public Use
  Company Number: US-ASTRAZENECA-2017SF31572

PATIENT
  Age: 23572 Day
  Sex: Female
  Weight: 72.6 kg

DRUGS (15)
  1. LISINOPRIL. [Suspect]
     Active Substance: LISINOPRIL
     Indication: HYPERTENSION
     Route: 048
     Dates: start: 2014
  2. OMEPRAZOLE. [Suspect]
     Active Substance: OMEPRAZOLE
     Route: 048
  3. CENTRUM FOR WOMEN OVER 50 [Concomitant]
     Indication: SUPPLEMENTATION THERAPY
     Dosage: DAILY
  4. LYNPARZA [Suspect]
     Active Substance: OLAPARIB
     Indication: OVARIAN CANCER
     Route: 048
     Dates: start: 20171103
  5. AMLODIPINE BESYLATE. [Concomitant]
     Active Substance: AMLODIPINE BESYLATE
  6. VITAMIN B12 [Concomitant]
     Active Substance: CYANOCOBALAMIN
     Indication: SUPPLEMENTATION THERAPY
  7. SYNTHROID [Concomitant]
     Active Substance: LEVOTHYROXINE SODIUM
     Indication: THYROID DISORDER
  8. DIPHENOXYLATE-ATROPINE [Concomitant]
     Active Substance: ATROPINE\DIPHENOXYLATE
     Indication: IRRITABLE BOWEL SYNDROME
     Dosage: 2.5, 0.025 MG TABLETS 1 FOUR TIMES DAILY AS NEEDED AND SHE USUALLY ONLY TAKES 2 IN THE MORNING,
  9. VITAMIN C [Concomitant]
     Active Substance: ASCORBIC ACID
     Indication: SUPPLEMENTATION THERAPY
  10. LISINOPRIL-HYDROCHLOROTHIAZIDE [Suspect]
     Active Substance: HYDROCHLOROTHIAZIDE\LISINOPRIL
     Indication: HYPERTENSION
     Route: 048
     Dates: start: 2014
  11. LYNPARZA [Suspect]
     Active Substance: OLAPARIB
     Indication: OVARIAN CANCER
     Route: 048
     Dates: start: 201802, end: 201802
  12. LYNPARZA [Suspect]
     Active Substance: OLAPARIB
     Indication: OVARIAN CANCER
     Dosage: 300 MG IN THE MORNING AND 150 MG AT NIGHT
     Route: 048
     Dates: start: 201802
  13. TUMS [Concomitant]
     Active Substance: CALCIUM CARBONATE
  14. SYNTHROID [Concomitant]
     Active Substance: LEVOTHYROXINE SODIUM
     Indication: THYROID DISORDER
  15. HYDROCODONE-ACETAMINOP [Concomitant]

REACTIONS (12)
  - Cough [Unknown]
  - Eye swelling [Unknown]
  - Full blood count decreased [Unknown]
  - Rash [Unknown]
  - Alopecia [Recovering/Resolving]
  - Pain in extremity [Unknown]
  - Sneezing [Unknown]
  - Eye pruritus [Unknown]
  - Fatigue [Unknown]
  - Insomnia [Unknown]
  - Carbohydrate antigen 125 increased [Unknown]
  - Adverse drug reaction [Unknown]

NARRATIVE: CASE EVENT DATE: 20180201
